FAERS Safety Report 9806075 (Version 2)
Quarter: 2015Q3

REPORT INFORMATION
  Report Type: Spontaneous
  Country: US (occurrence: US)
  Receive Date: 20140109
  Receipt Date: 20150817
  Transmission Date: 20151125
  Serious: No
  Sender: FDA-Public Use
  Company Number: US-GILEAD-2014-0091654

PATIENT
  Age: 47 Year
  Sex: Female

DRUGS (18)
  1. PROTONIX [Concomitant]
     Active Substance: PANTOPRAZOLE SODIUM
  2. POTASSIUM CHLORIDE. [Concomitant]
     Active Substance: POTASSIUM CHLORIDE
  3. CALCIUM [Concomitant]
     Active Substance: CALCIUM
  4. LEVOTHYROXINE. [Concomitant]
     Active Substance: LEVOTHYROXINE
  5. WARFARIN SODIUM. [Concomitant]
     Active Substance: WARFARIN SODIUM
  6. TYVASO [Concomitant]
     Active Substance: TREPROSTINIL
  7. MULTIVITAMINS [Concomitant]
     Active Substance: VITAMINS
  8. NEURONTIN [Concomitant]
     Active Substance: GABAPENTIN
  9. NORVASC [Concomitant]
     Active Substance: AMLODIPINE BESYLATE
  10. CARAFATE [Concomitant]
     Active Substance: SUCRALFATE
  11. SEROQUEL [Concomitant]
     Active Substance: QUETIAPINE FUMARATE
  12. LAMICTAL [Concomitant]
     Active Substance: LAMOTRIGINE
  13. LASIX [Concomitant]
     Active Substance: FUROSEMIDE
  14. TOPAMAX [Concomitant]
     Active Substance: TOPIRAMATE
  15. SPIRONOLACTONE. [Concomitant]
     Active Substance: SPIRONOLACTONE
  16. LETAIRIS [Suspect]
     Active Substance: AMBRISENTAN
     Indication: PULMONARY ARTERIAL HYPERTENSION
     Dosage: 2.5 MG, QD
     Route: 048
     Dates: start: 20120120
  17. ADCIRCA [Concomitant]
     Active Substance: TADALAFIL
  18. EFFEXOR [Concomitant]
     Active Substance: VENLAFAXINE HYDROCHLORIDE

REACTIONS (1)
  - Dyspnoea [Not Recovered/Not Resolved]

NARRATIVE: CASE EVENT DATE: 20140106
